FAERS Safety Report 6232345-7 (Version None)
Quarter: 2009Q2

REPORT INFORMATION
  Report Type: 
  Country: None (occurrence: None)
  Receive Date: 20090617
  Receipt Date: 20090610
  Transmission Date: 20091009
  Serious: Yes (Hospitalization)
  Sender: FDA-Public Use
  Company Number: ES-PFIZER INC-2009226292

PATIENT
  Age: 67 Year

DRUGS (7)
  1. SUNITINIB MALATE [Suspect]
     Dosage: 37.5 MG/DAY
     Route: 048
  2. CAPECITABINE [Suspect]
     Dosage: 1300 MG/DAY
     Route: 048
  3. DIGOXIN [Concomitant]
     Indication: ATRIAL FLUTTER
     Dosage: UNK
     Route: 048
  4. PROPRANOLOL [Concomitant]
     Indication: HYPERTENSION
     Dosage: UNK
     Route: 048
  5. HIBOR [Concomitant]
     Indication: ANTICOAGULANT THERAPY
     Dosage: UNK
     Route: 058
  6. ENALAPRIL MALEATE [Concomitant]
     Indication: HYPERTENSION
     Dosage: UNK
     Route: 048
  7. FUROSEMIDE [Concomitant]
     Indication: HYPERTENSION
     Dosage: UNK
     Route: 048

REACTIONS (5)
  - ANOREXIA [None]
  - ASTHENIA [None]
  - DIARRHOEA [None]
  - MUCOSAL INFLAMMATION [None]
  - RESPIRATORY TRACT INFECTION [None]
